FAERS Safety Report 10511802 (Version 1)
Quarter: 2014Q4

REPORT INFORMATION
  Report Type: Not Available
  Country: NL (occurrence: NL)
  Receive Date: 20141010
  Receipt Date: 20141010
  Transmission Date: 20150528
  Serious: Yes (Hospitalization, Other)
  Sender: FDA-Public Use
  Company Number: NL-MUNDIPHARMA DS AND PHARMACOVIGILANCE-GBR-2014-0022645

PATIENT
  Sex: Male
  Weight: 75 kg

DRUGS (2)
  1. OXYCODONE HCL PR TABLET 5 MG [Suspect]
     Active Substance: OXYCODONE HYDROCHLORIDE
     Indication: DEPRESSION
     Dosage: UNK
     Route: 065
     Dates: start: 20140304
  2. LORAZEPAM. [Interacting]
     Active Substance: LORAZEPAM
     Indication: DRUG ABUSE
     Dosage: 5 MG, UNK
     Dates: start: 20140823, end: 20140915

REACTIONS (12)
  - Suicidal ideation [Not Recovered/Not Resolved]
  - Depressed mood [Not Recovered/Not Resolved]
  - Drug abuse [Unknown]
  - Drug interaction [Not Recovered/Not Resolved]
  - Agitation [Not Recovered/Not Resolved]
  - Crying [Not Recovered/Not Resolved]
  - Hallucination, visual [Not Recovered/Not Resolved]
  - Vomiting [Not Recovered/Not Resolved]
  - Drug diversion [Unknown]
  - Diarrhoea [Not Recovered/Not Resolved]
  - Dizziness [Not Recovered/Not Resolved]
  - Hyperhidrosis [Not Recovered/Not Resolved]

NARRATIVE: CASE EVENT DATE: 20140902
